FAERS Safety Report 5492576-0 (Version None)
Quarter: 2007Q4

REPORT INFORMATION
  Report Type: 
  Country: None (occurrence: None)
  Receive Date: 20071022
  Receipt Date: 20071010
  Transmission Date: 20080405
  Serious: Yes (Death, Hospitalization, Other)
  Sender: FDA-Public Use
  Company Number: FR-PFIZER INC-2007067534

PATIENT
  Sex: Male

DRUGS (1)
  1. SUTENT [Suspect]
     Indication: HEPATIC NEOPLASM MALIGNANT
     Route: 048
     Dates: start: 20060511, end: 20070129

REACTIONS (5)
  - ASCITES [None]
  - BLOOD CREATININE INCREASED [None]
  - DEATH [None]
  - DYSPNOEA [None]
  - OEDEMA [None]
